FAERS Safety Report 4761909-2 (Version None)
Quarter: 2005Q3

REPORT INFORMATION
  Report Type: 
  Country: None (occurrence: None)
  Receive Date: 20050831
  Receipt Date: 20050106
  Transmission Date: 20060218
  Serious: Yes (Other)
  Sender: FDA-Public Use
  Company Number: 2005021257

PATIENT
  Age: 55 Year
  Sex: Female
  Weight: 158.759 kg

DRUGS (7)
  1. DETROL LA [Suspect]
     Indication: BLADDER DISORDER
     Dosage: ORAL
     Route: 048
     Dates: start: 20020101, end: 20020101
  2. DETROL [Suspect]
     Indication: BLADDER DISORDER
     Dosage: ORAL
     Route: 048
     Dates: start: 20020101, end: 20020101
  3. OXYBUTYNIN CHLORIDE [Suspect]
     Indication: BLADDER DISORDER
     Dosage: ORAL
     Route: 048
     Dates: start: 20020101, end: 20020101
  4. DICYCLOVERINE (DICYCLOVERINE) [Suspect]
     Indication: BLADDER DISORDER
     Dosage: ORAL
     Route: 048
  5. IMIPRAMINE [Suspect]
     Indication: BLADDER DISORDER
     Dosage: ORAL
     Route: 048
  6. ALL OTHER NON-THERAPEUTIC PRODUCTS (ALL OTHER NON-THERAPEUTIC PRODUCTS [Suspect]
     Indication: BLADDER DISORDER
     Dosage: TOPICAL
     Route: 061
  7. RANITIDINE [Concomitant]

REACTIONS (8)
  - CONDITION AGGRAVATED [None]
  - DIPLOPIA [None]
  - DYSKINESIA [None]
  - GASTROOESOPHAGEAL REFLUX DISEASE [None]
  - HALLUCINATION, AUDITORY [None]
  - PRURITUS [None]
  - URTICARIA [None]
  - VISION BLURRED [None]
